FAERS Safety Report 6377094-X (Version None)
Quarter: 2009Q3

REPORT INFORMATION
  Report Type: 
  Country: None (occurrence: None)
  Receive Date: 20090925
  Receipt Date: 20090915
  Transmission Date: 20100115
  Serious: Yes (Hospitalization)
  Sender: FDA-Public Use
  Company Number: JP-ASTRAZENECA-2009SE04363

PATIENT
  Age: 24792 Day
  Sex: Male
  Weight: 62 kg

DRUGS (3)
  1. OMEPRAL [Suspect]
     Indication: GASTRITIS
     Route: 048
     Dates: start: 20090520, end: 20090702
  2. METHYCOBAL [Suspect]
     Indication: CERVICAL MYELOPATHY
     Route: 048
     Dates: start: 20080201, end: 20090702
  3. TEGRETOL [Suspect]
     Indication: CERVICAL MYELOPATHY
     Route: 048
     Dates: start: 20080201, end: 20090702

REACTIONS (3)
  - LYMPHOPENIA [None]
  - ORAL HERPES [None]
  - SKIN EXFOLIATION [None]
